FAERS Safety Report 13537740 (Version 2)
Quarter: 2017Q2

REPORT INFORMATION
  Report Type: Spontaneous
  Country: US (occurrence: US)
  Receive Date: 20170511
  Receipt Date: 20170519
  Transmission Date: 20170830
  Serious: No
  Sender: FDA-Public Use
  Company Number: US-ACTELION-A-US2017-153611

PATIENT
  Age: 65 Year
  Sex: Male

DRUGS (11)
  1. LEXAPRO [Concomitant]
     Active Substance: ESCITALOPRAM OXALATE
     Dosage: 10 MGM,QD
  2. VITAMIN D3 [Concomitant]
     Active Substance: CHOLECALCIFEROL
     Dosage: 2000 U, UNK
  3. LOPRESSOR [Concomitant]
     Active Substance: METOPROLOL TARTRATE
     Dosage: 25 MGM
  4. SEROQUEL [Concomitant]
     Active Substance: QUETIAPINE FUMARATE
     Dosage: 25 MGM
     Dates: start: 20160907
  5. NORVASC [Concomitant]
     Active Substance: AMLODIPINE BESYLATE
     Dosage: 10 MGM , UNK
     Dates: start: 20161117
  6. VALCHLOR [Suspect]
     Active Substance: MECHLORETHAMINE
     Indication: MYCOSIS FUNGOIDES
     Dosage: MWF FOR 2 WEEKS THEN ADVANCE TO GO FOR 2 WEEKS THEN NIGHTLY
     Route: 061
     Dates: start: 201612
  7. PRAVACHOL [Concomitant]
     Active Substance: PRAVASTATIN SODIUM
     Dosage: 40 MGM , QD
     Route: 048
     Dates: start: 20161201
  8. WELLBUTRIN [Concomitant]
     Active Substance: BUPROPION HYDROCHLORIDE
     Dosage: 150 MGM, Q12
     Dates: start: 20161201
  9. BEXAROTENE. [Concomitant]
     Active Substance: BEXAROTENE
     Dosage: 225 MG, QD
     Route: 048
     Dates: start: 20161201
  10. HYDRODIURIL [Concomitant]
     Active Substance: HYDROCHLOROTHIAZIDE
     Dosage: 25 MGM
     Dates: start: 20160916
  11. SYNTHROID [Concomitant]
     Active Substance: LEVOTHYROXINE SODIUM
     Dosage: 50 MCG, UNK
     Dates: start: 20161201

REACTIONS (4)
  - Application site erythema [Unknown]
  - Application site pain [Unknown]
  - Application site hypersensitivity [Unknown]
  - Application site pruritus [Unknown]

NARRATIVE: CASE EVENT DATE: 201702
